FAERS Safety Report 9679978 (Version 2)
Quarter: 2013Q4

REPORT INFORMATION
  Report Type: Spontaneous
  Country: ES (occurrence: ES)
  Receive Date: 20131110
  Receipt Date: 20131110
  Transmission Date: 20140711
  Serious: Yes (Hospitalization)
  Sender: FDA-Public Use
  Company Number: PHHY2013ES122234

PATIENT
  Sex: Female

DRUGS (1)
  1. GLIVEC [Suspect]
     Indication: CHRONIC MYELOID LEUKAEMIA
     Dosage: 400 MG, OD (ONCE DAY)
     Route: 048
     Dates: start: 2011

REACTIONS (4)
  - Cholelithiasis [Unknown]
  - Biliary colic [Unknown]
  - Pancreatitis acute [Unknown]
  - Therapeutic response decreased [Unknown]
